FAERS Safety Report 10570253 (Version 1)
Quarter: 2014Q4

REPORT INFORMATION
  Report Type: Spontaneous
  Country: CN (occurrence: None)
  Receive Date: 20141105
  Receipt Date: 20141105
  Transmission Date: 20150529
  Serious: Yes (Death)
  Sender: FDA-Public Use
  Company Number: IMP_07998_2014

PATIENT
  Age: 36 Year
  Sex: Male

DRUGS (1)
  1. METFORMIN [Suspect]
     Active Substance: METFORMIN HYDROCHLORIDE
     Indication: HYPERGLYCAEMIA

REACTIONS (7)
  - Multi-organ failure [None]
  - Hepatorenal syndrome [None]
  - Partial seizures [None]
  - Haemodialysis [None]
  - Contraindication to medical treatment [None]
  - Metabolic acidosis [None]
  - Lactic acidosis [None]
